FAERS Safety Report 5714222-0 (Version None)
Quarter: 2008Q2

REPORT INFORMATION
  Report Type: 
  Country: None (occurrence: None)
  Receive Date: 20080423
  Receipt Date: 20070627
  Transmission Date: 20081010
  Serious: No
  Sender: FDA-Public Use
  Company Number: US-KINGPHARMUSA00001-K200700818

PATIENT

DRUGS (8)
  1. SKELAXIN [Suspect]
     Indication: NECK PAIN
     Dosage: 800 MG, QID
     Route: 048
     Dates: start: 20070626
  2. LISINOPRIL [Concomitant]
  3. GUANFACINE HYDROCHLORIDE [Concomitant]
  4. NORVASC [Concomitant]
  5. PREVACID [Concomitant]
  6. SEREVENT [Concomitant]
  7. FLOVENT [Concomitant]
  8. VITAMINS WITH MINERALS [Concomitant]

REACTIONS (1)
  - DRUG INEFFECTIVE [None]
